FAERS Safety Report 15810765 (Version 1)
Quarter: 2019Q1

REPORT INFORMATION
  Report Type: Report from Study
  Country: None (occurrence: AR)
  Receive Date: 20190111
  Receipt Date: 20190111
  Transmission Date: 20190417
  Serious: Yes (Death, Hospitalization, Other)
  Sender: FDA-Public Use
  Company Number: AR-ABBVIE-19K-007-2620980-00

PATIENT
  Age: 72 Year
  Sex: Male

DRUGS (1)
  1. HUMIRA [Suspect]
     Active Substance: ADALIMUMAB
     Indication: PRODUCT USED FOR UNKNOWN INDICATION
     Route: 058
     Dates: start: 20180711

REACTIONS (6)
  - Anaemia [Not Recovered/Not Resolved]
  - Colonoscopy abnormal [Unknown]
  - Neoplasm malignant [Unknown]
  - Cardiac arrest [Fatal]
  - Completed suicide [Fatal]
  - Brain death [Fatal]

NARRATIVE: CASE EVENT DATE: 2018
